FAERS Safety Report 10419280 (Version 6)
Quarter: 2015Q4

REPORT INFORMATION
  Report Type: Spontaneous
  Country: US (occurrence: US)
  Receive Date: 20140829
  Receipt Date: 20151021
  Transmission Date: 20160304
  Serious: No
  Sender: FDA-Public Use
  Company Number: US-PFIZER INC-2014237823

PATIENT
  Age: 84 Year
  Sex: Male
  Weight: 95.24 kg

DRUGS (5)
  1. VIAGRA [Suspect]
     Active Substance: SILDENAFIL CITRATE
     Indication: ERECTILE DYSFUNCTION
     Dosage: 100 MG, AS NEEDED
     Route: 048
     Dates: start: 2014
  2. VIAGRA [Suspect]
     Active Substance: SILDENAFIL CITRATE
     Dosage: 100 MG, UNK
  3. VIAGRA [Suspect]
     Active Substance: SILDENAFIL CITRATE
     Dosage: 100 MG, SINGLE
  4. METOPROLOL [Concomitant]
     Active Substance: METOPROLOL
     Indication: HYPERTENSION
     Dosage: UNK
  5. WARFARIN [Concomitant]
     Active Substance: WARFARIN
     Dosage: UNK

REACTIONS (6)
  - Penis disorder [Unknown]
  - Drug effect incomplete [Unknown]
  - Expired product administered [Unknown]
  - Drug ineffective [Unknown]
  - Ejaculation failure [Unknown]
  - Sperm concentration zero [Unknown]

NARRATIVE: CASE EVENT DATE: 2014
